FAERS Safety Report 22259011 (Version 2)
Quarter: 2023Q2

REPORT INFORMATION
  Report Type: Report from Study
  Country: CA (occurrence: CA)
  Receive Date: 20230427
  Receipt Date: 20230427
  Transmission Date: 20230721
  Serious: Yes (Hospitalization)
  Sender: FDA-Public Use
  Company Number: CA-ABBVIE-4740871

PATIENT
  Age: 25 Year
  Sex: Female
  Weight: 44 kg

DRUGS (2)
  1. RINVOQ [Suspect]
     Active Substance: UPADACITINIB
     Indication: Dermatitis atopic
     Dosage: FORM STRENGTH 15 MILLIGRAM ?FREQUENCY TEXT: AS NEEDED
     Route: 048
     Dates: start: 20230331, end: 20230421
  2. RINVOQ [Suspect]
     Active Substance: UPADACITINIB
     Indication: Dermatitis atopic
     Dosage: FORM STRENGTH 15 MILLIGRAM
     Route: 048
     Dates: start: 20220513

REACTIONS (2)
  - Asthma [Recovered/Resolved]
  - Upper respiratory tract infection [Recovered/Resolved]

NARRATIVE: CASE EVENT DATE: 20230331
